FAERS Safety Report 19678611 (Version 1)
Quarter: 2021Q3

REPORT INFORMATION
  Report Type: Spontaneous
  Country: US (occurrence: US)
  Receive Date: 20210809
  Receipt Date: 20210809
  Transmission Date: 20211014
  Serious: Yes (Death)
  Sender: FDA-Public Use
  Company Number: None

PATIENT
  Age: 33 Year
  Sex: Female
  Weight: 56.2 kg

DRUGS (2)
  1. MYCOPHENOLIC 180 MG TAB [Suspect]
     Active Substance: MYCOPHENOLIC ACID
     Indication: LUNG TRANSPLANT
     Route: 048
     Dates: start: 20200723, end: 20210802
  2. TACROLIMUS 0.5 MG [Suspect]
     Active Substance: TACROLIMUS
     Route: 048
     Dates: start: 20200723, end: 20210802

REACTIONS (3)
  - Hypoxia [None]
  - Transplant rejection [None]
  - Respiratory failure [None]

NARRATIVE: CASE EVENT DATE: 20210802
